FAERS Safety Report 11825564 (Version 1)
Quarter: 2015Q4

REPORT INFORMATION
  Report Type: Spontaneous
  Country: US (occurrence: US)
  Receive Date: 20151211
  Receipt Date: 20151211
  Transmission Date: 20160305
  Serious: No
  Sender: FDA-Public Use
  Company Number: US-JNJFOC-20150707857

PATIENT
  Age: 56 Year
  Sex: Female

DRUGS (12)
  1. RELPAX [Concomitant]
     Active Substance: ELETRIPTAN HYDROBROMIDE
  2. BOTOX [Concomitant]
     Active Substance: ONABOTULINUMTOXINA
  3. PROMETHAZINE [Concomitant]
     Active Substance: PROMETHAZINE\PROMETHAZINE HYDROCHLORIDE
  4. BENADRYL [Concomitant]
     Active Substance: DIPHENHYDRAMINE HYDROCHLORIDE
  5. LEXAPRO [Concomitant]
     Active Substance: ESCITALOPRAM OXALATE
  6. WELLBUTRIN [Concomitant]
     Active Substance: BUPROPION HYDROCHLORIDE
  7. IMBRUVICA [Suspect]
     Active Substance: IBRUTINIB
     Indication: WALDENSTROM^S MACROGLOBULINAEMIA
     Route: 048
     Dates: start: 20150605
  8. SIMVASTATIN. [Concomitant]
     Active Substance: SIMVASTATIN
  9. ACYCLOVIR. [Concomitant]
     Active Substance: ACYCLOVIR
  10. ASPIRIN. [Concomitant]
     Active Substance: ASPIRIN
  11. KLONOPIN [Concomitant]
     Active Substance: CLONAZEPAM
  12. FLUTICASONE PROPIONATE. [Concomitant]
     Active Substance: FLUTICASONE PROPIONATE

REACTIONS (8)
  - Vomiting [Unknown]
  - Muscle spasms [Unknown]
  - Chills [Unknown]
  - Pain in extremity [Unknown]
  - Dyspepsia [Unknown]
  - Night sweats [Unknown]
  - Alopecia [Unknown]
  - Nausea [Unknown]

NARRATIVE: CASE EVENT DATE: 2015
